FAERS Safety Report 7065124-1 (Version None)
Quarter: 2010Q4

REPORT INFORMATION
  Report Type: 
  Country: None (occurrence: None)
  Receive Date: 20101027
  Receipt Date: 19930105
  Transmission Date: 20110411
  Serious: Yes (Death, Hospitalization)
  Sender: FDA-Public Use
  Company Number: DE-ROCHE-930318770001

PATIENT
  Age: 79 Year
  Sex: Female
  Weight: 62 kg

DRUGS (1)
  1. ISOTRETINOIN [Suspect]
     Dosage: FREQUENCY: 3
     Route: 048

REACTIONS (6)
  - DEATH [None]
  - DRY SKIN [None]
  - LARGE INTESTINE PERFORATION [None]
  - MUSCULOSKELETAL DISORDER [None]
  - NEOPLASM [None]
  - VISUAL IMPAIRMENT [None]
